FAERS Safety Report 26094484 (Version 1)
Quarter: 2025Q4

REPORT INFORMATION
  Report Type: Spontaneous
  Country: US (occurrence: US)
  Receive Date: 20251126
  Receipt Date: 20251126
  Transmission Date: 20260117
  Serious: Yes (Hospitalization)
  Sender: KALVISTA PHARMACEUTICALS
  Company Number: US-KP-00161

PATIENT
  Age: 88 Year
  Sex: Female

DRUGS (1)
  1. EKTERLY [Suspect]
     Active Substance: SEBETRALSTAT
     Indication: Hereditary angioedema
     Dosage: TIME INTERVAL: AS NECESSARY
     Route: 048
     Dates: start: 20251027, end: 20251027

REACTIONS (1)
  - Drug ineffective [Unknown]
